FAERS Safety Report 17276262 (Version 1)
Quarter: 2020Q1

REPORT INFORMATION
  Report Type: Spontaneous
  Country: US (occurrence: US)
  Receive Date: 20200116
  Receipt Date: 20200116
  Transmission Date: 20200409
  Serious: No
  Sender: FDA-Public Use
  Company Number: US-TEVA-2020-US-1167842

PATIENT
  Sex: Male

DRUGS (2)
  1. FENTANYL. [Concomitant]
     Active Substance: FENTANYL
     Indication: PAIN
     Route: 037
  2. TESTOSTERONE. [Suspect]
     Active Substance: TESTOSTERONE
     Dosage: 4 PUMPS IN THE MORNING
     Route: 061

REACTIONS (1)
  - Alcohol test false positive [Unknown]
